FAERS Safety Report 8767883 (Version 2)
Quarter: 2012Q4

REPORT INFORMATION
  Report Type: 
  Country: US (occurrence: US)
  Receive Date: 20120829
  Receipt Date: 20120921
  Transmission Date: 20130627
  Serious: Yes (Hospitalization)
  Sender: FDA-Public Use
  Company Number: US-ELI_LILLY_AND_COMPANY-US201208008388

PATIENT
  Sex: Female
  Weight: 68.48 kg

DRUGS (20)
  1. FORTEO [Suspect]
     Dosage: 20 u, qd
     Route: 058
     Dates: start: 201102
  2. AMBIEN [Concomitant]
     Dosage: 5 mg, qd
  3. ASPIRIN [Concomitant]
     Dosage: 81 mg, qd
  4. CALCIUM [Concomitant]
     Dosage: 600 mg, bid
     Route: 048
  5. CARVEDILOL [Concomitant]
     Dosage: 12.5 mg, bid
     Route: 048
  6. COLACE [Concomitant]
     Dosage: 100 mg, qid
  7. COMBIVENT [Concomitant]
     Dosage: 2 DF, qid
     Route: 055
  8. ESCITALOPRAM OXALATE [Concomitant]
     Dosage: 10 mg, qd
     Route: 048
  9. FENTANYL [Concomitant]
     Dosage: UNK DF, UNK
     Route: 062
  10. MAGNESIUM OXIDE [Concomitant]
     Dosage: 400 mg, qd
     Route: 048
  11. METHOTREXATE [Concomitant]
     Dosage: 2.5 mg, prn
     Route: 048
  12. METOLAZONE [Concomitant]
     Dosage: 2.5 mg, tid
     Route: 048
  13. MULTIVITAMIN [Concomitant]
     Dosage: 1 DF, qd
     Route: 048
  14. ONDANSETRON HCL [Concomitant]
     Indication: NAUSEA
     Dosage: 4 mg, qid
     Route: 048
  15. PREDNISONE [Concomitant]
     Dosage: 10 mg, UNK
  16. PROCHLORPERAZINE [Concomitant]
     Dosage: 1 DF, tid
     Route: 054
  17. RANITIDINE HCL [Concomitant]
     Dosage: 150 mg, qd
     Route: 048
  18. RESTASIS [Concomitant]
     Dosage: 1 DF, bid
     Route: 014
  19. TORSEMIDE [Concomitant]
     Dosage: 20 mg, qd
     Route: 048
  20. VITAMIN D3 [Concomitant]
     Dosage: 1 DF, qd
     Route: 048

REACTIONS (2)
  - Blood potassium decreased [Recovered/Resolved]
  - Vomiting [Recovered/Resolved]
